FAERS Safety Report 19894002 (Version 1)
Quarter: 2021Q3

REPORT INFORMATION
  Report Type: Spontaneous
  Country: US (occurrence: US)
  Receive Date: 20210928
  Receipt Date: 20210928
  Transmission Date: 20211014
  Serious: Yes (Other)
  Sender: FDA-Public Use
  Company Number: None

PATIENT
  Age: 60 Year
  Sex: Male

DRUGS (14)
  1. REPATHA [Suspect]
     Active Substance: EVOLOCUMAB
     Indication: HYPERLIPIDAEMIA
     Dosage: ?          OTHER FREQUENCY:Q 2 WEEKS.;?
     Route: 058
     Dates: start: 20210911, end: 20210925
  2. TRAMADOL 50MG [Concomitant]
     Active Substance: TRAMADOL
  3. STELARA [Concomitant]
     Active Substance: USTEKINUMAB
  4. RAMIPRIL 10MG [Concomitant]
     Active Substance: RAMIPRIL
  5. LANTUS [Concomitant]
     Active Substance: INSULIN GLARGINE
  6. METFORMIN [Concomitant]
     Active Substance: METFORMIN HYDROCHLORIDE
  7. ECONAZOLE CREAM [Concomitant]
     Active Substance: ECONAZOLE
  8. AMLODIPINE [Concomitant]
     Active Substance: AMLODIPINE BESYLATE
  9. HYDROXYCHLOROQUINE [Concomitant]
     Active Substance: HYDROXYCHLOROQUINE
  10. SERTRALINE 50MG [Concomitant]
     Active Substance: SERTRALINE HYDROCHLORIDE
  11. VITAMIN B12 [Concomitant]
     Active Substance: CYANOCOBALAMIN
  12. GLIPIZIDE 5MG [Concomitant]
     Active Substance: GLIPIZIDE
  13. NEXLETOL 180MG [Concomitant]
  14. MELOXICAM 10MG [Concomitant]

REACTIONS (1)
  - Arthralgia [None]
